FAERS Safety Report 14519605 (Version 1)
Quarter: 2018Q1

REPORT INFORMATION
  Report Type: Spontaneous
  Country: US (occurrence: US)
  Receive Date: 20180210
  Receipt Date: 20180210
  Transmission Date: 20180509
  Serious: Yes (Disabling)
  Sender: FDA-Public Use
  Company Number: None

PATIENT
  Age: 35 Year
  Sex: Male
  Weight: 74.25 kg

DRUGS (6)
  1. MOMETOSONE FUORATE [Suspect]
     Active Substance: MOMETASONE FUROATE
     Indication: ECZEMA
     Route: 061
     Dates: start: 19850101, end: 20160201
  2. DESONIDE. [Suspect]
     Active Substance: DESONIDE
     Indication: ECZEMA
     Route: 061
     Dates: start: 20060101, end: 20160201
  3. VENTOLIN [Concomitant]
     Active Substance: ALBUTEROL SULFATE
  4. ADVAIR HFA [Concomitant]
     Active Substance: FLUTICASONE PROPIONATE\SALMETEROL XINAFOATE
  5. DOXEPIN [Concomitant]
     Active Substance: DOXEPIN
  6. CBD OIL [Concomitant]
     Active Substance: CANNABIDIOL

REACTIONS (20)
  - Wound secretion [None]
  - Fatigue [None]
  - Temperature regulation disorder [None]
  - Neuralgia [None]
  - Scab [None]
  - Insomnia [None]
  - Peripheral swelling [None]
  - Affect lability [None]
  - Alopecia [None]
  - Pruritus [None]
  - Eczema herpeticum [None]
  - Lymphadenopathy [None]
  - Steroid withdrawal syndrome [None]
  - Hyperhidrosis [None]
  - Erythema [None]
  - Appetite disorder [None]
  - Joint swelling [None]
  - Skin exfoliation [None]
  - Eczema weeping [None]
  - Eosinophilia [None]

NARRATIVE: CASE EVENT DATE: 20160201
